FAERS Safety Report 26184805 (Version 1)
Quarter: 2025Q4

REPORT INFORMATION
  Report Type: Spontaneous
  Country: US (occurrence: US)
  Receive Date: 20251222
  Receipt Date: 20251222
  Transmission Date: 20260118
  Serious: Yes (Life-Threatening, Hospitalization, Other)
  Sender: STRIDES
  Company Number: US-STRIDES ARCOLAB LIMITED-2025SP015798

PATIENT
  Age: 80 Year
  Sex: Male

DRUGS (1)
  1. AMLODIPINE [Suspect]
     Active Substance: AMLODIPINE BESYLATE
     Indication: Product used for unknown indication
     Dosage: 180 DOSAGE FORM
     Route: 065

REACTIONS (11)
  - Multiple organ dysfunction syndrome [Unknown]
  - Acute kidney injury [Unknown]
  - Atrioventricular block complete [Unknown]
  - Respiratory distress [Unknown]
  - Haemodynamic instability [Unknown]
  - Suicide attempt [Unknown]
  - Bradycardia [Unknown]
  - Pulmonary oedema [Unknown]
  - Hypotension [Unknown]
  - Toxicity to various agents [Unknown]
  - Intentional overdose [Unknown]
